FAERS Safety Report 11789920 (Version 4)
Quarter: 2017Q3

REPORT INFORMATION
  Report Type: Report from Study
  Country: JP (occurrence: JP)
  Receive Date: 20151201
  Receipt Date: 20170911
  Transmission Date: 20171127
  Serious: Yes (Hospitalization, Other)
  Sender: FDA-Public Use
  Company Number: JP-ASTELLAS-2009JP000641

PATIENT
  Age: 26 Year
  Sex: Female

DRUGS (119)
  1. LOXONIN [Concomitant]
     Active Substance: LOXOPROFEN SODIUM
     Indication: HERPES ZOSTER
     Route: 048
     Dates: start: 20111208, end: 20111221
  2. HIRNAMIN [Concomitant]
     Active Substance: PHENOTHIAZINE
     Indication: MANIA
     Route: 048
     Dates: start: 20100525, end: 20100809
  3. ATELEC [Concomitant]
     Active Substance: CILNIDIPINE
     Route: 048
     Dates: start: 20130826, end: 20140223
  4. PREDONINE [Suspect]
     Active Substance: PREDNISOLONE
     Route: 048
     Dates: start: 20080324, end: 20080428
  5. PREDONINE [Suspect]
     Active Substance: PREDNISOLONE
     Route: 048
     Dates: start: 20100511, end: 20100603
  6. PREDONINE [Suspect]
     Active Substance: PREDNISOLONE
     Route: 048
     Dates: start: 20100727, end: 20100809
  7. PREDONINE [Suspect]
     Active Substance: PREDNISOLONE
     Route: 048
     Dates: start: 20130729, end: 20150426
  8. MUCODYNE [Concomitant]
     Active Substance: CARBOCYSTEINE
     Indication: BRONCHITIS
     Route: 048
     Dates: start: 20100412, end: 20100418
  9. MICARDIS [Concomitant]
     Active Substance: TELMISARTAN
     Indication: PRODUCT USED FOR UNKNOWN INDICATION
     Route: 048
  10. MICARDIS [Concomitant]
     Active Substance: TELMISARTAN
     Dosage: 20-40 MG/DAY
     Route: 048
  11. IMURAN [Concomitant]
     Active Substance: AZATHIOPRINE
     Indication: LUPUS NEPHRITIS
     Route: 048
     Dates: start: 20120320, end: 20120528
  12. PATANOL [Concomitant]
     Active Substance: OLOPATADINE HYDROCHLORIDE
     Dosage: 1-2 DROPS AT A TIME, 4 TIMES DAILY
     Route: 047
     Dates: start: 20120228, end: 20120319
  13. ALLEGRA [Concomitant]
     Active Substance: FEXOFENADINE HYDROCHLORIDE
     Indication: CONJUNCTIVITIS ALLERGIC
     Route: 048
     Dates: start: 20090330, end: 20090427
  14. FLOMOX                             /01418603/ [Concomitant]
     Active Substance: CEFCAPENE PIVOXIL HYDROCHLORIDE HYDRATE
     Indication: BRONCHITIS
     Route: 048
     Dates: start: 20100406, end: 20100409
  15. FLOMOX                             /01418603/ [Concomitant]
     Active Substance: CEFCAPENE PIVOXIL HYDROCHLORIDE HYDRATE
     Indication: TOOTHACHE
     Route: 048
     Dates: start: 20131125, end: 20131129
  16. LOXONIN [Concomitant]
     Active Substance: LOXOPROFEN SODIUM
     Indication: BRONCHITIS
     Route: 048
     Dates: start: 20100406, end: 20100409
  17. BUSCOPAN [Concomitant]
     Active Substance: BUTYLSCOPOLAMINE BROMIDE
     Indication: GASTROENTERITIS
     Route: 048
     Dates: start: 20091228, end: 20100103
  18. PROCYLIN [Concomitant]
     Active Substance: BERAPROST SODIUM
     Indication: PROPHYLAXIS
  19. CELLCEPT [Suspect]
     Active Substance: MYCOPHENOLATE MOFETIL\MYCOPHENOLATE MOFETIL HYDROCHLORIDE
     Indication: LUPUS NEPHRITIS
     Route: 048
     Dates: start: 20100511, end: 20111208
  20. TAKEPRON [Concomitant]
     Active Substance: LANSOPRAZOLE
     Indication: PROPHYLAXIS
     Route: 048
     Dates: start: 20110118
  21. LIPITOR [Concomitant]
     Indication: PROPHYLAXIS
     Route: 048
  22. VALTREX [Concomitant]
     Active Substance: VALACYCLOVIR HYDROCHLORIDE
     Indication: HERPES ZOSTER
     Route: 048
     Dates: start: 20111208, end: 20111212
  23. GASTER [Concomitant]
     Indication: PROPHYLAXIS
     Route: 048
     Dates: end: 20110117
  24. IMURAN [Concomitant]
     Active Substance: AZATHIOPRINE
     Route: 048
     Dates: start: 20140127
  25. SULBACILLIN [Concomitant]
     Active Substance: AMPICILLIN SODIUM\SULBACTAM SODIUM
     Indication: HERPES ZOSTER
     Route: 065
     Dates: start: 20111215, end: 20111219
  26. ACECOL [Concomitant]
     Active Substance: TEMOCAPRIL HYDROCHLORIDE
     Indication: PRODUCT USED FOR UNKNOWN INDICATION
     Route: 048
     Dates: end: 20070709
  27. WARFARIN [Concomitant]
     Active Substance: WARFARIN
     Dosage: 3.5-5 MG/DAY
     Route: 048
     Dates: end: 20100420
  28. ALLEGRA [Concomitant]
     Active Substance: FEXOFENADINE HYDROCHLORIDE
     Route: 048
     Dates: start: 20140224, end: 20140427
  29. LOXONIN [Concomitant]
     Active Substance: LOXOPROFEN SODIUM
     Indication: TOOTHACHE
     Route: 048
     Dates: start: 20131125, end: 20131204
  30. TAMIFLU [Concomitant]
     Active Substance: OSELTAMIVIR PHOSPHATE
     Indication: INFLUENZA
     Route: 048
     Dates: start: 20091212, end: 20091216
  31. MUCOSTA [Concomitant]
     Active Substance: REBAMIPIDE
     Indication: GASTROENTERITIS
     Route: 048
     Dates: start: 20091228, end: 20100103
  32. BONALON [Concomitant]
     Active Substance: ALENDRONATE SODIUM
     Indication: PROPHYLAXIS
     Route: 048
     Dates: start: 20100528
  33. JZOLOFT [Concomitant]
     Active Substance: SERTRALINE HYDROCHLORIDE
     Indication: MANIA
     Dosage: 25-50 MG/DAY
     Route: 048
     Dates: start: 20100706, end: 20101214
  34. TOMIRON [Concomitant]
     Active Substance: CEFTERAM PIVOXIL
     Indication: TOOTHACHE
     Route: 048
     Dates: start: 20140331, end: 20140404
  35. PREDONINE [Suspect]
     Active Substance: PREDNISOLONE
     Route: 048
     Dates: start: 20100618, end: 20100627
  36. PREDONINE [Suspect]
     Active Substance: PREDNISOLONE
     Route: 048
     Dates: start: 20100713, end: 20100726
  37. PREDONINE [Suspect]
     Active Substance: PREDNISOLONE
     Route: 048
     Dates: start: 20110816, end: 20120924
  38. HALCION [Concomitant]
     Active Substance: TRIAZOLAM
     Indication: INSOMNIA
     Dosage: 0.25 MG, ONCE DAILY
     Route: 048
     Dates: start: 20111208
  39. RASILEZ [Concomitant]
     Active Substance: ALISKIREN
     Route: 048
     Dates: start: 20130708, end: 20150629
  40. VALTREX [Concomitant]
     Active Substance: VALACYCLOVIR HYDROCHLORIDE
     Route: 048
     Dates: start: 20150120, end: 20150124
  41. ARASENA A [Concomitant]
     Active Substance: VIDARABINE
     Indication: HERPES ZOSTER
     Dosage: ADEQUATE DOSE, UNKNOWN FREQ.
     Route: 061
     Dates: start: 20131217, end: 20131224
  42. PATANOL [Concomitant]
     Active Substance: OLOPATADINE HYDROCHLORIDE
     Indication: CONJUNCTIVITIS ALLERGIC
     Dosage: 1-2 DROPS AT A TIME, 4 TIMES DAILY
     Route: 047
     Dates: start: 20090223, end: 20090427
  43. ZYPREXA [Concomitant]
     Active Substance: OLANZAPINE
     Indication: MANIA
     Route: 048
     Dates: start: 20100601, end: 20100611
  44. ROCEPHIN [Concomitant]
     Active Substance: CEFTRIAXONE SODIUM
     Indication: BRONCHITIS
     Route: 048
     Dates: start: 20071220, end: 20071221
  45. ISODINE [Concomitant]
     Active Substance: POVIDONE-IODINE
     Indication: TOOTHACHE
     Dosage: ADEQUATE DOSE, UNKNOWN FREQ.
     Route: 061
     Dates: start: 20131125, end: 20131216
  46. TACROLIMUS. [Suspect]
     Active Substance: TACROLIMUS
     Route: 048
     Dates: start: 20100617, end: 20100726
  47. PREDONINE [Suspect]
     Active Substance: PREDNISOLONE
     Route: 048
     Dates: start: 20100604, end: 20100617
  48. PREDONINE [Suspect]
     Active Substance: PREDNISOLONE
     Route: 048
     Dates: start: 20100628, end: 20100712
  49. PREDONINE [Suspect]
     Active Substance: PREDNISOLONE
     Route: 048
     Dates: start: 20100928, end: 20101013
  50. PREDONINE [Suspect]
     Active Substance: PREDNISOLONE
     Route: 048
     Dates: start: 20120925, end: 20130128
  51. HUSTAZOL [Concomitant]
     Active Substance: CLOPERASTINE
     Indication: BRONCHITIS
     Route: 048
     Dates: start: 20100406, end: 20100418
  52. HALCION [Concomitant]
     Active Substance: TRIAZOLAM
     Indication: INSOMNIA
     Dosage: 0.125 MG, AS NEEDED
     Route: 048
     Dates: start: 20100406
  53. ARASENA A [Concomitant]
     Active Substance: VIDARABINE
     Indication: HERPES ZOSTER
     Dosage: SEVERAL TIMES/DAY
     Route: 061
     Dates: start: 20111208, end: 20111213
  54. MAGLAX [Concomitant]
     Active Substance: MAGNESIUM OXIDE
     Indication: PRODUCT USED FOR UNKNOWN INDICATION
     Route: 048
     Dates: end: 20131027
  55. WARFARIN [Concomitant]
     Active Substance: WARFARIN
     Indication: PROPHYLAXIS
     Dosage: 3.5-5 MG/DAY
     Route: 048
  56. WARFARIN [Concomitant]
     Active Substance: WARFARIN
     Dosage: 4-5 MG/DAY
     Route: 048
  57. WARFARIN [Concomitant]
     Active Substance: WARFARIN
     Dosage: 2.5-5 MG/DAY
     Route: 048
  58. FERROMIA [Concomitant]
     Active Substance: FERROUS CITRATE
     Route: 048
     Dates: start: 20090824, end: 20091130
  59. PATANOL [Concomitant]
     Active Substance: OLOPATADINE HYDROCHLORIDE
     Dosage: UNK UNK, 4 TIMES DAILY
     Route: 047
     Dates: start: 20131125, end: 20140427
  60. HUSCODE [Concomitant]
     Active Substance: CHLORPHENIRAMINE MALEAT\DIHYDROCODEINE PHOSPHATE\METHYLEPHEDRINE HYDROCHLORIDE, DL-
     Indication: INFLUENZA
     Route: 048
     Dates: start: 20071211, end: 20071227
  61. HUSCODE [Concomitant]
     Active Substance: CHLORPHENIRAMINE MALEAT\DIHYDROCODEINE PHOSPHATE\METHYLEPHEDRINE HYDROCHLORIDE, DL-
     Route: 048
     Dates: start: 20091212, end: 20091216
  62. ITRIZOLE [Concomitant]
     Active Substance: ITRACONAZOLE
     Indication: PROPHYLAXIS
     Route: 048
     Dates: start: 20100514, end: 20100726
  63. PROCYLIN [Concomitant]
     Active Substance: BERAPROST SODIUM
     Indication: PULMONARY HYPERTENSION
     Dosage: 60 UG, ONCE DAILY
     Route: 048
     Dates: start: 20100513
  64. MUCOSOLVAN [Concomitant]
     Active Substance: AMBROXOL HYDROCHLORIDE
     Indication: BRONCHITIS
     Route: 048
     Dates: start: 20071211, end: 20071218
  65. RESPLEN [Concomitant]
     Active Substance: EPRAZINONE
     Indication: BRONCHITIS
     Route: 048
     Dates: start: 20091221, end: 20091227
  66. ATELEC [Concomitant]
     Active Substance: CILNIDIPINE
     Indication: PRODUCT USED FOR UNKNOWN INDICATION
     Route: 048
     Dates: start: 20130128, end: 20130825
  67. TACROLIMUS. [Suspect]
     Active Substance: TACROLIMUS
     Indication: LUPUS NEPHRITIS
     Route: 048
     Dates: start: 20070528, end: 20100604
  68. TACROLIMUS. [Suspect]
     Active Substance: TACROLIMUS
     Route: 048
     Dates: start: 20100727, end: 20111208
  69. PREDONINE [Suspect]
     Active Substance: PREDNISOLONE
     Route: 048
     Dates: start: 20100810, end: 20100823
  70. RASILEZ [Concomitant]
     Active Substance: ALISKIREN
     Indication: PRODUCT USED FOR UNKNOWN INDICATION
     Dosage: 150-300 MG/DAY
     Route: 048
     Dates: start: 20110329
  71. VALTREX [Concomitant]
     Active Substance: VALACYCLOVIR HYDROCHLORIDE
     Indication: HERPES ZOSTER
     Route: 048
     Dates: start: 20131217, end: 20131223
  72. MICARDIS [Concomitant]
     Active Substance: TELMISARTAN
     Route: 048
  73. IMURAN [Concomitant]
     Active Substance: AZATHIOPRINE
     Route: 048
     Dates: start: 20120619, end: 20131217
  74. FERROMIA [Concomitant]
     Active Substance: FERROUS CITRATE
     Route: 048
     Dates: start: 20110816, end: 20111128
  75. MEVALOTIN [Concomitant]
     Active Substance: PRAVASTATIN SODIUM
     Indication: PRODUCT USED FOR UNKNOWN INDICATION
     Route: 048
     Dates: end: 20110221
  76. LOXONIN [Concomitant]
     Active Substance: LOXOPROFEN SODIUM
     Route: 048
     Dates: start: 20150120, end: 20150127
  77. MUCOSTA [Concomitant]
     Active Substance: REBAMIPIDE
     Indication: HERPES ZOSTER
     Route: 048
     Dates: start: 20131219, end: 20140106
  78. MUCOSTA [Concomitant]
     Active Substance: REBAMIPIDE
     Indication: HERPES ZOSTER
     Route: 048
     Dates: start: 20150120, end: 20150127
  79. WYPAX [Concomitant]
     Active Substance: LORAZEPAM
     Indication: MANIA
     Route: 048
     Dates: start: 20100706, end: 20100921
  80. TACROLIMUS. [Suspect]
     Active Substance: TACROLIMUS
     Route: 048
     Dates: start: 20100605, end: 20100616
  81. TACROLIMUS. [Suspect]
     Active Substance: TACROLIMUS
     Route: 048
     Dates: start: 20111227
  82. PREDONINE [Suspect]
     Active Substance: PREDNISOLONE
     Indication: LUPUS NEPHRITIS
     Route: 048
     Dates: end: 20080324
  83. PREDONINE [Suspect]
     Active Substance: PREDNISOLONE
     Route: 048
     Dates: start: 20110621, end: 20110815
  84. FLUMETHOLON [Concomitant]
     Active Substance: FLUOROMETHOLONE
     Indication: CONJUNCTIVITIS ALLERGIC
     Dosage: SEVERAL INSTILLATIONS/DAY
     Route: 047
     Dates: start: 20100809, end: 20100823
  85. GENTACIN [Concomitant]
     Active Substance: GENTAMICIN SULFATE
     Indication: HERPES ZOSTER
     Dosage: UNK UNK, ONCE OR TWICE/DAY
     Route: 061
     Dates: start: 20111213, end: 20111219
  86. VICCLOX [Concomitant]
     Active Substance: ACYCLOVIR SODIUM
     Indication: HERPES ZOSTER
     Route: 065
     Dates: start: 20111212, end: 20111219
  87. BUFFERIN [Concomitant]
     Active Substance: ASPIRIN
     Indication: PROPHYLAXIS
     Route: 048
     Dates: end: 20100420
  88. BUFFERIN [Concomitant]
     Active Substance: ASPIRIN
     Route: 048
     Dates: start: 20100430
  89. WARFARIN [Concomitant]
     Active Substance: WARFARIN
     Route: 048
     Dates: end: 20111005
  90. FERROMIA [Concomitant]
     Active Substance: FERROUS CITRATE
     Indication: IRON DEFICIENCY ANAEMIA
     Route: 048
     Dates: start: 20080526, end: 20080728
  91. FERROMIA [Concomitant]
     Active Substance: FERROUS CITRATE
     Route: 048
     Dates: start: 20101115, end: 20110117
  92. ALLEGRA [Concomitant]
     Active Substance: FEXOFENADINE HYDROCHLORIDE
     Route: 048
     Dates: start: 20110329, end: 20110425
  93. ALLEGRA [Concomitant]
     Active Substance: FEXOFENADINE HYDROCHLORIDE
     Route: 048
     Dates: start: 20120228, end: 20120319
  94. LOXONIN [Concomitant]
     Active Substance: LOXOPROFEN SODIUM
     Indication: GASTROENTERITIS
     Route: 048
     Dates: start: 20091221, end: 20091227
  95. DEPAS [Concomitant]
     Active Substance: ETIZOLAM
     Indication: INSOMNIA
     Route: 048
     Dates: start: 20100519, end: 20120531
  96. LODOPINE [Concomitant]
     Active Substance: ZOTEPINE
     Indication: MANIA
     Route: 048
     Dates: start: 20100525, end: 20100726
  97. PL [Concomitant]
     Active Substance: ACETAMINOPHEN\CAFFEINE\PROMETHAZINE\SALICYLAMIDE
     Indication: VIRAL UPPER RESPIRATORY TRACT INFECTION
     Dosage: UNK UNK, UNKNOWN FREQ.
     Route: 065
  98. PREDONINE [Suspect]
     Active Substance: PREDNISOLONE
     Route: 048
     Dates: start: 20100824, end: 20100927
  99. PREDONINE [Suspect]
     Active Substance: PREDNISOLONE
     Route: 048
     Dates: start: 20101014, end: 20101115
  100. PREDONINE [Suspect]
     Active Substance: PREDNISOLONE
     Route: 048
     Dates: start: 20101116, end: 20110620
  101. PREDONINE [Suspect]
     Active Substance: PREDNISOLONE
     Route: 048
     Dates: start: 20130423, end: 20130728
  102. CELLCEPT [Suspect]
     Active Substance: MYCOPHENOLATE MOFETIL\MYCOPHENOLATE MOFETIL HYDROCHLORIDE
     Route: 048
     Dates: start: 20111227, end: 20120319
  103. LIPITOR [Concomitant]
     Indication: HYPERLIPIDAEMIA
     Route: 048
     Dates: start: 20110222
  104. IMURAN [Concomitant]
     Active Substance: AZATHIOPRINE
     Route: 048
     Dates: start: 20120529, end: 20120618
  105. LYRICA [Concomitant]
     Active Substance: PREGABALIN
     Indication: HERPES ZOSTER
     Route: 048
     Dates: start: 20111213, end: 20111214
  106. WARFARIN [Concomitant]
     Active Substance: WARFARIN
     Route: 048
  107. WARFARIN [Concomitant]
     Active Substance: WARFARIN
     Dosage: 3.5-5 MG/DAY
     Route: 048
     Dates: start: 20100430
  108. ALLEGRA [Concomitant]
     Active Substance: FEXOFENADINE HYDROCHLORIDE
     Indication: CONJUNCTIVITIS ALLERGIC
     Route: 048
     Dates: start: 20100809, end: 20100927
  109. FLOMOX                             /01418603/ [Concomitant]
     Active Substance: CEFCAPENE PIVOXIL HYDROCHLORIDE HYDRATE
     Indication: GINGIVITIS
     Route: 048
     Dates: start: 20090928, end: 20091004
  110. LOXONIN [Concomitant]
     Active Substance: LOXOPROFEN SODIUM
     Indication: HERPES ZOSTER
     Route: 048
     Dates: start: 20131217, end: 20140106
  111. BAKTAR [Concomitant]
     Active Substance: SULFAMETHOXAZOLE\TRIMETHOPRIM
     Indication: PROPHYLAXIS
     Route: 048
     Dates: start: 20100514, end: 20101018
  112. SP TROCHES [Concomitant]
     Active Substance: DEQUALINIUM CHLORIDE
     Indication: VIRAL UPPER RESPIRATORY TRACT INFECTION
     Dosage: UNK UNK, UNKNOWN FREQ.
     Route: 065
  113. TOMIRON [Concomitant]
     Active Substance: CEFTERAM PIVOXIL
     Indication: BRONCHITIS
     Route: 048
     Dates: start: 20091228, end: 20100103
  114. PREDONINE [Suspect]
     Active Substance: PREDNISOLONE
     Route: 048
     Dates: start: 20080428, end: 20100510
  115. PREDONINE [Suspect]
     Active Substance: PREDNISOLONE
     Route: 048
     Dates: start: 20130129, end: 20130422
  116. PREDONINE [Suspect]
     Active Substance: PREDNISOLONE
     Route: 048
     Dates: start: 20150427
  117. RASILEZ [Concomitant]
     Active Substance: ALISKIREN
     Route: 048
     Dates: end: 20130707
  118. FERROMIA [Concomitant]
     Active Substance: FERROUS CITRATE
     Route: 048
     Dates: start: 20130708, end: 20131124
  119. LOXONIN [Concomitant]
     Active Substance: LOXOPROFEN SODIUM
     Indication: GINGIVITIS
     Route: 048
     Dates: start: 20090928, end: 20091004

REACTIONS (17)
  - Gingivitis [Recovering/Resolving]
  - Mania [Recovering/Resolving]
  - Conjunctivitis allergic [Recovering/Resolving]
  - Insomnia [Not Recovered/Not Resolved]
  - Cervical dysplasia [Recovering/Resolving]
  - Insomnia [Recovered/Resolved]
  - Bronchitis [Recovering/Resolving]
  - Influenza [Recovering/Resolving]
  - Herpes zoster [Recovering/Resolving]
  - Herpes zoster [Recovering/Resolving]
  - Conjunctivitis allergic [Recovered/Resolved]
  - Rhinitis allergic [Recovering/Resolving]
  - Toothache [Recovered/Resolved]
  - Iron deficiency anaemia [Recovering/Resolving]
  - Pulmonary hypertension [Recovering/Resolving]
  - Nasopharyngitis [Recovering/Resolving]
  - Gastroenteritis [Recovering/Resolving]

NARRATIVE: CASE EVENT DATE: 20070717
